FAERS Safety Report 7794523-5 (Version None)
Quarter: 2011Q4

REPORT INFORMATION
  Report Type: 
  Country: None (occurrence: None)
  Receive Date: 20111004
  Receipt Date: 20110922
  Transmission Date: 20120403
  Serious: Yes (Other)
  Sender: FDA-Public Use
  Company Number: US-BAYER-2011-063775

PATIENT
  Age: 36 Year
  Sex: Female
  Weight: 81.633 kg

DRUGS (5)
  1. YASMIN [Suspect]
     Dosage: UNK
     Dates: start: 20040722
  2. YASMIN [Suspect]
     Indication: CONTRACEPTION
     Dosage: UNK
     Dates: start: 20030101, end: 20100101
  3. DROSPIRENONE AND ETHINYL ESTRADIOL [Suspect]
     Indication: CONTRACEPTION
     Dosage: UNK
     Dates: start: 20030101, end: 20100101
  4. DROSPIRENONE AND ETHINYL ESTRADIOL [Suspect]
     Dosage: UNK
     Dates: start: 20040722
  5. ONE-A-DAY [MINERALS NOS,VITAMINS NOS] [Concomitant]
     Dosage: UNK UNK, QD
     Route: 048

REACTIONS (2)
  - CHOLECYSTITIS CHRONIC [None]
  - GALLBLADDER INJURY [None]
